FAERS Safety Report 6238587-9 (Version None)
Quarter: 2009Q2

REPORT INFORMATION
  Report Type: 
  Country: None (occurrence: None)
  Receive Date: 20090618
  Receipt Date: 20090611
  Transmission Date: 20091009
  Serious: Yes (Death)
  Sender: FDA-Public Use
  Company Number: 2009JP003641

PATIENT
  Age: 47 Year
  Sex: Male

DRUGS (3)
  1. PROGRAF [Suspect]
     Indication: LIVER TRANSPLANT
     Dosage: ORAL
     Route: 048
  2. MYCOPHENOLATE MOFETIL [Suspect]
     Indication: LIVER TRANSPLANT
     Dosage: ORAL
     Route: 048
  3. STEROID (PER ORAL NOS) [Suspect]
     Indication: LIVER TRANSPLANT
     Dosage: ORAL
     Route: 048

REACTIONS (5)
  - ALPHA 1 FOETOPROTEIN INCREASED [None]
  - HEPATIC NEOPLASM MALIGNANT RECURRENT [None]
  - METASTASES TO BONE [None]
  - METASTASIS [None]
  - VISUAL PATHWAY DISORDER [None]
